FAERS Safety Report 19658878 (Version 4)
Quarter: 2022Q1

REPORT INFORMATION
  Report Type: Spontaneous
  Country: CO (occurrence: CO)
  Receive Date: 20210805
  Receipt Date: 20220204
  Transmission Date: 20220423
  Serious: Yes (Other)
  Sender: FDA-Public Use
  Company Number: CO-AMGEN-COLSP2021117472

PATIENT
  Age: 61 Year
  Sex: Female
  Weight: 70 kg

DRUGS (7)
  1. MVASI [Suspect]
     Active Substance: BEVACIZUMAB-AWWB
     Indication: Adenocarcinoma of colon
     Dosage: 360 MILLIGRAM, QD
     Route: 042
     Dates: start: 20210330
  2. OXALIPLATIN [Suspect]
     Active Substance: OXALIPLATIN
     Indication: Adenocarcinoma of colon
     Dosage: 152.15 MILLIGRAM, QD
     Route: 042
     Dates: start: 20210330
  3. LEUCOVORIN CALCIUM [Concomitant]
     Active Substance: LEUCOVORIN CALCIUM
     Indication: Adenocarcinoma of colon
     Dosage: 716 MILLIGRAM, QD
     Route: 042
     Dates: start: 20210330
  4. DEXAMETHASONE PHOSPHATE [Concomitant]
     Active Substance: DEXAMETHASONE PHOSPHATE
     Indication: Adenocarcinoma of colon
     Dosage: 16 MILLIGRAM, QD
     Route: 042
     Dates: start: 20210330
  5. FLUOROURACIL [Concomitant]
     Active Substance: FLUOROURACIL
     Indication: Adenocarcinoma of colon
     Dosage: 4296 MILLIGRAM, QD
     Route: 042
     Dates: start: 20210330
  6. FOSAPREPITANT [Concomitant]
     Active Substance: FOSAPREPITANT
     Indication: Adenocarcinoma of colon
     Dosage: 150 MILLIGRAM, QD
     Route: 042
     Dates: start: 20210330
  7. UNSPECIFIED INGREDIENT [Concomitant]
     Active Substance: UNSPECIFIED INGREDIENT
     Indication: Thrombosis prophylaxis
     Dosage: UNK
     Dates: start: 2020

REACTIONS (7)
  - Neurotoxicity [Unknown]
  - COVID-19 [Unknown]
  - Dizziness [Recovering/Resolving]
  - Gastrointestinal toxicity [Unknown]
  - Nephropathy [Unknown]
  - Vomiting [Recovering/Resolving]
  - Abdominal pain [Recovering/Resolving]

NARRATIVE: CASE EVENT DATE: 20210101
